FAERS Safety Report 7693487-2 (Version None)
Quarter: 2011Q3

REPORT INFORMATION
  Report Type: 
  Country: None (occurrence: None)
  Receive Date: 20110819
  Receipt Date: 20110819
  Transmission Date: 20111222
  Serious: Yes (Other)
  Sender: FDA-Public Use
  Company Number: None

PATIENT
  Sex: Male
  Weight: 104.32 kg

DRUGS (4)
  1. FIRMAGON [Suspect]
     Indication: NEOPLASM PROSTATE
     Dosage: THEN 80MG
     Route: 058
     Dates: start: 20110610, end: 20111201
  2. NILUTIMIDE [Concomitant]
  3. NILUTIMIDE [Concomitant]
  4. XGEVA [Concomitant]

REACTIONS (6)
  - INJECTION SITE INDURATION [None]
  - URTICARIA [None]
  - ABDOMINAL PAIN [None]
  - INJECTION SITE ERYTHEMA [None]
  - INJECTION SITE WARMTH [None]
  - INJECTION SITE PAIN [None]
